FAERS Safety Report 4607496-0 (Version None)
Quarter: 2005Q1

REPORT INFORMATION
  Report Type: 
  Country: None (occurrence: None)
  Receive Date: 20050309
  Receipt Date: 20050225
  Transmission Date: 20050727
  Serious: Yes (Hospitalization)
  Sender: FDA-Public Use
  Company Number: MK200502-0263-1

PATIENT
  Age: 29 Year
  Sex: Female

DRUGS (2)
  1. NALTREXONE HCL [Suspect]
  2. METHADONE HCL [Concomitant]

REACTIONS (13)
  - ABDOMINAL PAIN [None]
  - ACCIDENTAL EXPOSURE [None]
  - AGITATION [None]
  - BLOOD PRESSURE DIASTOLIC DECREASED [None]
  - CONDITION AGGRAVATED [None]
  - DRUG ABUSER [None]
  - FEELING ABNORMAL [None]
  - MYDRIASIS [None]
  - PILOERECTION [None]
  - RESPIRATORY DEPTH INCREASED [None]
  - RESPIRATORY RATE INCREASED [None]
  - TREMOR [None]
  - VOMITING [None]
